FAERS Safety Report 4895710-6 (Version None)
Quarter: 2006Q1

REPORT INFORMATION
  Report Type: 
  Country: None (occurrence: None)
  Receive Date: 20060125
  Receipt Date: 20060104
  Transmission Date: 20060701
  Serious: Yes (Death)
  Sender: FDA-Public Use
  Company Number: US200601000626

PATIENT
  Age: 20 Year
  Sex: Female

DRUGS (3)
  1. ZYPREXA [Suspect]
     Dosage: ORAL
     Route: 048
  2. VALPROIC ACID [Concomitant]
  3. ACETAMINOPHEN [Concomitant]

REACTIONS (5)
  - COMPLETED SUICIDE [None]
  - DRUG TOXICITY [None]
  - HYPOTENSION [None]
  - PUPIL FIXED [None]
  - TACHYCARDIA [None]
